FAERS Safety Report 10128575 (Version 3)
Quarter: 2014Q2

REPORT INFORMATION
  Report Type: Spontaneous
  Country: US (occurrence: US)
  Receive Date: 20140428
  Receipt Date: 20140530
  Transmission Date: 20141212
  Serious: Yes (Other)
  Sender: FDA-Public Use
  Company Number: US-JNJFOC-20140305719

PATIENT
  Age: 44 Year
  Sex: Male

DRUGS (1)
  1. RISPERDAL CONSTA [Suspect]
     Indication: SCHIZOPHRENIA
     Route: 030
     Dates: start: 20131118

REACTIONS (4)
  - Schizophrenia [Unknown]
  - Drug dose omission [Unknown]
  - Device malfunction [Unknown]
  - Needle issue [Unknown]
